FAERS Safety Report 18043086 (Version 1)
Quarter: 2020Q3

REPORT INFORMATION
  Report Type: Report from Study
  Country: TH (occurrence: TH)
  Receive Date: 20200720
  Receipt Date: 20200720
  Transmission Date: 20201103
  Serious: Yes (Death, Hospitalization, Other)
  Sender: FDA-Public Use
  Company Number: TH-ASTELLAS-2020US024417

PATIENT
  Age: 71 Year
  Sex: Male

DRUGS (1)
  1. ENZALUTAMIDE [Suspect]
     Active Substance: ENZALUTAMIDE
     Indication: HORMONE-REFRACTORY PROSTATE CANCER
     Route: 048
     Dates: start: 202005, end: 202005

REACTIONS (3)
  - Gait inability [Not Recovered/Not Resolved]
  - Muscular weakness [Unknown]
  - Death [Fatal]

NARRATIVE: CASE EVENT DATE: 202005
